FAERS Safety Report 11691261 (Version 1)
Quarter: 2015Q4

REPORT INFORMATION
  Report Type: Spontaneous
  Country: US (occurrence: US)
  Receive Date: 20151102
  Receipt Date: 20151102
  Transmission Date: 20160304
  Serious: Yes (Other)
  Sender: FDA-Public Use
  Company Number: US-ASTRAZENECA-2015SF05199

PATIENT
  Sex: Female
  Weight: 93.9 kg

DRUGS (3)
  1. BYETTA [Suspect]
     Active Substance: EXENATIDE
     Indication: TYPE 2 DIABETES MELLITUS
     Route: 058
  2. PRILOSEC [Suspect]
     Active Substance: OMEPRAZOLE MAGNESIUM
     Indication: GASTROOESOPHAGEAL REFLUX DISEASE
     Route: 048
  3. BYDUREON [Suspect]
     Active Substance: EXENATIDE
     Indication: TYPE 2 DIABETES MELLITUS
     Route: 058
     Dates: start: 2013

REACTIONS (7)
  - Aggression [Recovered/Resolved]
  - Injection site pain [Recovered/Resolved]
  - Diabetes mellitus inadequate control [Unknown]
  - Drug hypersensitivity [Unknown]
  - Underdose [Recovered/Resolved]
  - Intentional device misuse [Unknown]
  - Product quality issue [Unknown]
